FAERS Safety Report 24941072 (Version 1)
Quarter: 2025Q1

REPORT INFORMATION
  Report Type: Spontaneous
  Country: TR (occurrence: TR)
  Receive Date: 20250207
  Receipt Date: 20250207
  Transmission Date: 20250408
  Serious: Yes (Hospitalization, Other)
  Sender: JUBILANT
  Company Number: TR-JUBILANT CADISTA PHARMACEUTICALS-2025TR000025

PATIENT
  Age: 56 Year
  Sex: Female

DRUGS (1)
  1. LEVETIRACETAM [Suspect]
     Active Substance: LEVETIRACETAM
     Indication: Epilepsy
     Dosage: 1000 MG, ONCE PER DAY
     Route: 065

REACTIONS (3)
  - Abnormal behaviour [Recovered/Resolved]
  - Hallucination, visual [Recovered/Resolved]
  - Deja vu [Recovered/Resolved]
